FAERS Safety Report 6723925-0 (Version None)
Quarter: 2010Q2

REPORT INFORMATION
  Report Type: 
  Country: None (occurrence: None)
  Receive Date: 20100513
  Receipt Date: 20041111
  Transmission Date: 20101027
  Serious: Yes (Other)
  Sender: FDA-Public Use
  Company Number: PHNU2004DE03737

PATIENT
  Sex: Female
  Weight: 68 kg

DRUGS (12)
  1. AREDIA [Suspect]
     Indication: METASTASES TO BONE
     Dosage: 90 MG, QMO
     Route: 042
     Dates: start: 20010607, end: 20021204
  2. AREDIA [Suspect]
     Dosage: 90 MG, QMO
     Route: 042
     Dates: start: 20040405, end: 20041028
  3. ZOMETA [Suspect]
     Indication: METASTASES TO BONE
     Dosage: 4 MG, QMO
     Route: 042
     Dates: start: 20030303, end: 20040308
  4. RADIATION [Concomitant]
     Route: 065
     Dates: start: 20031201, end: 20031201
  5. FARLUTAL [Concomitant]
     Indication: UTERINE CANCER
     Dosage: 500 MG, QD
     Route: 048
     Dates: start: 20011002, end: 20031117
  6. VIOXX [Concomitant]
     Indication: PAIN
     Dosage: 1 DF, BID
     Route: 048
     Dates: start: 20020704, end: 20040209
  7. VALORON N                          /01617301/ [Concomitant]
     Indication: PAIN
     Dosage: 100 MG, TID
     Route: 048
     Dates: start: 20040210, end: 20040308
  8. MST [Concomitant]
     Indication: PAIN
     Dosage: 20 MG, BID
     Route: 048
     Dates: start: 20040409, end: 20040527
  9. HALDOL [Concomitant]
     Indication: NAUSEA
     Dosage: 3 DF, TID
     Route: 048
     Dates: start: 20040527
  10. TRANSTEC [Concomitant]
     Indication: PAIN
     Dosage: 1 DF, Q72H
     Route: 061
     Dates: start: 20040527
  11. PREDNISONE [Concomitant]
     Indication: DECREASED APPETITE
     Dosage: 12.5 MG, QD
     Route: 048
     Dates: start: 20040527, end: 20041028
  12. VOMEX A ^YAMANOUCHI^ [Concomitant]
     Indication: NAUSEA
     Dosage: 1 DF, TID
     Route: 065
     Dates: start: 19050623

REACTIONS (4)
  - BIOPSY BONE ABNORMAL [None]
  - EXCESSIVE GRANULATION TISSUE [None]
  - INFECTION [None]
  - OSTEONECROSIS OF JAW [None]
